FAERS Safety Report 6609421-X (Version None)
Quarter: 2010Q1

REPORT INFORMATION
  Report Type: 
  Country: None (occurrence: None)
  Receive Date: 20100302
  Receipt Date: 20100224
  Transmission Date: 20100710
  Serious: Yes (Death)
  Sender: FDA-Public Use
  Company Number: US-ELI_LILLY_AND_COMPANY-US201002007350

PATIENT

DRUGS (2)
  1. GEMCITABINE HCL [Suspect]
     Indication: NEOPLASM MALIGNANT
     Dosage: 1000 MG/M2, UNK
     Route: 042
  2. IRINOTECAN HCL [Concomitant]
     Indication: NEOPLASM MALIGNANT
     Dosage: 100 MG/M2, UNK
     Route: 042

REACTIONS (1)
  - DEATH [None]
